FAERS Safety Report 9640435 (Version 1)
Quarter: 2013Q4

REPORT INFORMATION
  Report Type: Spontaneous
  Country: US (occurrence: None)
  Receive Date: 20131022
  Receipt Date: 20131022
  Transmission Date: 20140711
  Serious: No
  Sender: FDA-Public Use
  Company Number: None

PATIENT
  Age: 57 Year
  Sex: Female
  Weight: 63.5 kg

DRUGS (13)
  1. TOPIRAMATE [Suspect]
     Indication: CONVULSION
     Dosage: 4 PILLS; 4 IN MORNING AND 4 IN EVENING
     Route: 048
     Dates: start: 20130731
  2. FEROCON [Concomitant]
  3. DORYX [Concomitant]
  4. LOSARTAN [Concomitant]
  5. SIMVASTATIN [Concomitant]
  6. OMEPRAZOLE [Concomitant]
  7. METFORMIN [Concomitant]
  8. BABY ASPIRIN [Concomitant]
  9. BIOTIN [Concomitant]
  10. GLUCOSAMINE + CHONDROITIN [Concomitant]
  11. VITAMIN C [Concomitant]
  12. MULTIVITAMIN [Concomitant]
  13. CALCIUM PLUS D [Concomitant]

REACTIONS (9)
  - Dizziness [None]
  - Confusional state [None]
  - Anger [None]
  - Affective disorder [None]
  - Balance disorder [None]
  - Headache [None]
  - Paraesthesia [None]
  - Bradyphrenia [None]
  - Speech disorder [None]
